FAERS Safety Report 7773727-1 (Version None)
Quarter: 2011Q3

REPORT INFORMATION
  Report Type: 
  Country: None (occurrence: None)
  Receive Date: 20110920
  Receipt Date: 20110909
  Transmission Date: 20111222
  Serious: Yes (Death)
  Sender: FDA-Public Use
  Company Number: UTC-010120

PATIENT
  Age: 77 Year
  Sex: Male
  Weight: 63.6 kg

DRUGS (1)
  1. REMODULIN [Suspect]
     Indication: HYPERTENSION
     Dosage: 1.44 UG/KG (0.001 UG/KG, 1 IN 1 MIN), INTRAVENOUS
     Route: 042
     Dates: start: 20100129

REACTIONS (1)
  - HEADACHE [None]
